FAERS Safety Report 24573568 (Version 1)
Quarter: 2024Q4

REPORT INFORMATION
  Report Type: Spontaneous
  Country: RO (occurrence: RO)
  Receive Date: 20241102
  Receipt Date: 20241102
  Transmission Date: 20250115
  Serious: Yes (Hospitalization, Other)
  Sender: B BRAUN
  Company Number: RO-B.Braun Medical Inc.-2164272

PATIENT
  Sex: Male

DRUGS (6)
  1. METRONIDAZOLE [Suspect]
     Active Substance: METRONIDAZOLE
  2. GENTAMICIN [Suspect]
     Active Substance: GENTAMICIN
  3. FLUCONAZOLE [Suspect]
     Active Substance: FLUCONAZOLE
  4. AMPICILLIN [Suspect]
     Active Substance: AMPICILLIN
  5. VANCOMYCIN [Suspect]
     Active Substance: VANCOMYCIN
  6. MEROPENEM [Suspect]
     Active Substance: MEROPENEM

REACTIONS (2)
  - Neonatal cholestasis [Unknown]
  - Condition aggravated [Unknown]
